FAERS Safety Report 4712363-8 (Version None)
Quarter: 2005Q3

REPORT INFORMATION
  Report Type: 
  Country: None (occurrence: None)
  Receive Date: 20050711
  Receipt Date: 20050628
  Transmission Date: 20060218
  Serious: Yes (Hospitalization)
  Sender: FDA-Public Use
  Company Number: 2005086383

PATIENT
  Age: 75 Year
  Sex: Male
  Weight: 74 kg

DRUGS (8)
  1. IRINOTECAN HCL [Suspect]
     Indication: COLORECTAL CANCER METASTATIC
     Dosage: 180 MG/M2 (1 IN 2 WK), INTRAVENOUS
     Route: 042
     Dates: start: 20050411, end: 20050524
  2. IRINOTECAN HCL [Suspect]
     Indication: METASTASES TO LIVER
     Dosage: 180 MG/M2 (1 IN 2 WK), INTRAVENOUS
     Route: 042
     Dates: start: 20050411, end: 20050524
  3. LEUCOVORIN CALCIUM [Suspect]
     Indication: COLORECTAL CANCER METASTATIC
     Dosage: 200 MG/M2 (1 IN 2 WK), INTRAVENOUS
     Route: 042
     Dates: start: 20050411, end: 20050525
  4. LEUCOVORIN CALCIUM [Suspect]
     Indication: METASTASES TO LIVER
     Dosage: 200 MG/M2 (1 IN 2 WK), INTRAVENOUS
     Route: 042
     Dates: start: 20050411, end: 20050525
  5. FLUOROURACIL [Suspect]
     Indication: COLORECTAL CANCER METASTATIC
     Dosage: 1000 MG/M2 (1 IN 2 WK), INTRAVENOUS
     Route: 042
     Dates: start: 20050411, end: 20050525
  6. FLUOROURACIL [Suspect]
     Indication: METASTASES TO LIVER
     Dosage: 1000 MG/M2 (1 IN 2 WK), INTRAVENOUS
     Route: 042
     Dates: start: 20050411, end: 20050525
  7. TYLENOL (PARACETAMOL) [Concomitant]
  8. LOPERAMIDE HYDROCHLORIDE [Concomitant]

REACTIONS (9)
  - ABDOMINAL PAIN LOWER [None]
  - CLOSTRIDIAL INFECTION [None]
  - DECREASED APPETITE [None]
  - DIARRHOEA [None]
  - FATIGUE [None]
  - HYPOKALAEMIA [None]
  - SMALL INTESTINAL PERFORATION [None]
  - VERTIGO [None]
  - VOMITING [None]
